FAERS Safety Report 8034305-2 (Version None)
Quarter: 2012Q1

REPORT INFORMATION
  Report Type: 
  Country: None (occurrence: None)
  Receive Date: 20120110
  Receipt Date: 20120105
  Transmission Date: 20120608
  Serious: Yes (Other)
  Sender: FDA-Public Use
  Company Number: PHHY2012CH001608

PATIENT
  Age: 51 Year
  Sex: Female

DRUGS (5)
  1. CLOZAPINE [Suspect]
     Dosage: 25 MG, PER DAY
     Dates: start: 20111101
  2. DEPAKENE [Concomitant]
  3. CLOZAPINE [Suspect]
     Dosage: LOWER DOSE
     Dates: start: 20110101
  4. PROGESTERONE [Concomitant]
     Dosage: 100 MG, DAILY
     Dates: start: 20110901
  5. CLOZAPINE [Suspect]
     Indication: BIPOLAR DISORDER
     Dosage: 25 MG, DAILY
     Route: 048
     Dates: start: 19900101

REACTIONS (4)
  - APTYALISM [None]
  - GINGIVAL INFECTION [None]
  - DENTAL CARIES [None]
  - GINGIVITIS [None]
